FAERS Safety Report 9744899 (Version 1)
Quarter: 2013Q4

REPORT INFORMATION
  Report Type: Report from Study
  Country: US (occurrence: US)
  Receive Date: 20131211
  Receipt Date: 20131211
  Transmission Date: 20140711
  Serious: Yes (Death, Other)
  Sender: FDA-Public Use
  Company Number: US-ROCHE-1312494

PATIENT
  Sex: 0

DRUGS (5)
  1. RITUXIMAB [Suspect]
     Indication: NON-HODGKIN^S LYMPHOMA
     Route: 065
  2. CYCLOPHOSPHAMIDE [Suspect]
     Indication: NON-HODGKIN^S LYMPHOMA
     Route: 065
  3. DOXORUBICIN [Suspect]
     Indication: NON-HODGKIN^S LYMPHOMA
     Route: 065
  4. VINCRISTINE [Suspect]
     Indication: NON-HODGKIN^S LYMPHOMA
     Route: 065
  5. PREDNISONE [Suspect]
     Indication: NON-HODGKIN^S LYMPHOMA
     Route: 065

REACTIONS (15)
  - Neutropenic infection [Fatal]
  - Haemorrhage [Fatal]
  - Lung disorder [Fatal]
  - Renal failure [Fatal]
  - Infection [Fatal]
  - Multi-organ failure [Fatal]
  - Cardiotoxicity [Fatal]
  - Gastrointestinal toxicity [Unknown]
  - Pulmonary toxicity [Unknown]
  - Metabolic disorder [Unknown]
  - Neurotoxicity [Unknown]
  - Dyspnoea [Unknown]
  - Hyperglycaemia [Unknown]
  - Hypoxia [Unknown]
  - Hepatotoxicity [Unknown]
